FAERS Safety Report 9221547 (Version 3)
Quarter: 2013Q2

REPORT INFORMATION
  Report Type: Spontaneous
  Country: JP (occurrence: JP)
  Receive Date: 20130410
  Receipt Date: 20130416
  Transmission Date: 20140414
  Serious: Yes (Hospitalization, Other)
  Sender: FDA-Public Use
  Company Number: JP-009507513-1304JPN002863

PATIENT
  Age: 62 Year
  Sex: Male
  Weight: 89 kg

DRUGS (12)
  1. REBETOL [Suspect]
     Indication: CHRONIC HEPATITIS C
     Dosage: 1000 MG, QD
     Route: 048
     Dates: start: 20130110, end: 20130213
  2. REBETOL [Suspect]
     Dosage: 800 MG, QD
     Route: 048
     Dates: start: 20130214, end: 20130306
  3. REBETOL [Suspect]
     Dosage: 600 MG, QD
     Route: 048
     Dates: start: 20130307, end: 20130323
  4. REBETOL [Suspect]
     Dosage: UNK
  5. PEGINTRON [Suspect]
     Indication: CHRONIC HEPATITIS C
     Dosage: 1.5 MICROGRAM PER KILOGRAM, WEEK
     Route: 058
     Dates: start: 20130110
  6. TELAVIC [Suspect]
     Indication: CHRONIC HEPATITIS C
     Dosage: 2250 MG, QD
     Route: 048
     Dates: start: 20130110, end: 20130321
  7. URSO [Concomitant]
     Indication: CHRONIC HEPATITIS C
     Dosage: 900 MG, QD, FORMULATION: POR
     Route: 048
  8. DIOVAN [Concomitant]
     Dosage: 40 MG, QD, FORMULATION: POR
     Route: 048
  9. POLAPREZINC [Concomitant]
     Dosage: 1 G, QD, FORMULATION: POR
     Route: 048
  10. PARIET [Concomitant]
     Dosage: 10 MG, QD, FORMULATION: POR
     Route: 048
  11. DAI-KENCHU-TO [Concomitant]
     Dosage: 7.5 G, QD, FORMULATION: POR
     Route: 048
  12. GASMOTIN [Concomitant]
     Dosage: 15 MG, QD, FORMULATION: POR
     Route: 048

REACTIONS (2)
  - Drug eruption [Recovering/Resolving]
  - Haemoglobin decreased [Not Recovered/Not Resolved]
